FAERS Safety Report 5734607-6 (Version None)
Quarter: 2008Q2

REPORT INFORMATION
  Report Type: 
  Country: None (occurrence: None)
  Receive Date: 20080430
  Receipt Date: 20080221
  Transmission Date: 20081010
  Serious: No
  Sender: FDA-Public Use
  Company Number: 2008PV034335

PATIENT
  Age: 74 Year
  Sex: Female

DRUGS (5)
  1. SYMLIN [Suspect]
     Indication: TYPE 2 DIABETES MELLITUS
     Dosage: 120 MCG;TID;SC
     Route: 058
     Dates: start: 20080221
  2. SYMLIN [Suspect]
     Indication: TYPE 2 DIABETES MELLITUS
     Dosage: 120 MCG;TID;SC
     Route: 058
     Dates: end: 20080201
  3. INSULIN DETEMIR [Concomitant]
  4. JANUVIA [Concomitant]
  5. GLYBURIDE [Concomitant]

REACTIONS (1)
  - INJECTION SITE EXTRAVASATION [None]
